FAERS Safety Report 14985965 (Version 2)
Quarter: 2018Q2

REPORT INFORMATION
  Report Type: Report from Study
  Country: KR (occurrence: KR)
  Receive Date: 20180607
  Receipt Date: 20180615
  Transmission Date: 20180711
  Serious: Yes (Hospitalization)
  Sender: FDA-Public Use
  Company Number: KR-KOWA-18JP001279

PATIENT
  Age: 51 Year
  Sex: Male

DRUGS (8)
  1. CONCOR [Concomitant]
     Active Substance: BISOPROLOL FUMARATE
     Indication: ACUTE MYOCARDIAL INFARCTION
     Dosage: 0.5 DF, QD
     Route: 048
     Dates: start: 20171128
  2. PITAVASTATIN. [Suspect]
     Active Substance: PITAVASTATIN CALCIUM
     Indication: DYSLIPIDAEMIA
     Dosage: 4 MG, UNK
     Route: 048
     Dates: start: 20171201
  3. BRILINTA [Concomitant]
     Active Substance: TICAGRELOR
     Indication: ACUTE MYOCARDIAL INFARCTION
     Dosage: 2 DF, QD
     Route: 048
     Dates: start: 20171128
  4. VALSARTAN. [Suspect]
     Active Substance: VALSARTAN
     Indication: PRODUCT USED FOR UNKNOWN INDICATION
     Dosage: 80 MG, UNK
     Route: 048
     Dates: start: 20171201
  5. ATACAND [Concomitant]
     Active Substance: CANDESARTAN CILEXETIL
     Indication: ACUTE MYOCARDIAL INFARCTION
     Dosage: 0.5 DF, QD
     Route: 048
     Dates: start: 20171129
  6. NITROGLYCERIN. [Concomitant]
     Active Substance: NITROGLYCERIN
     Indication: ACUTE MYOCARDIAL INFARCTION
     Dosage: UNK, PRN
     Route: 048
     Dates: start: 20171128
  7. ASPIRIN                            /00002701/ [Concomitant]
     Active Substance: ASPIRIN
     Indication: ACUTE MYOCARDIAL INFARCTION
     Dosage: 1 DF, QD
     Route: 048
     Dates: start: 20171129
  8. DEXILANT [Concomitant]
     Active Substance: DEXLANSOPRAZOLE
     Indication: ACUTE MYOCARDIAL INFARCTION
     Dosage: 1 DF, QD
     Route: 048
     Dates: start: 20171128

REACTIONS (1)
  - Acute myocardial infarction [Recovered/Resolved]

NARRATIVE: CASE EVENT DATE: 20180526
